FAERS Safety Report 7610301-1 (Version None)
Quarter: 2011Q3

REPORT INFORMATION
  Report Type: 
  Country: None (occurrence: None)
  Receive Date: 20110713
  Receipt Date: 20110713
  Transmission Date: 20111222
  Serious: Yes (Other)
  Sender: FDA-Public Use
  Company Number: None

PATIENT
  Sex: Female
  Weight: 79.3795 kg

DRUGS (4)
  1. SYNTHROID [Suspect]
     Dosage: 75 MCG 1/DAY
     Dates: start: 20101201
  2. SYNTHROID [Suspect]
     Dosage: 75 MCG 1/DAY
     Dates: start: 20110201
  3. SYNTHROID [Suspect]
     Dosage: 75 MCG 1/DAY
     Dates: start: 20100501
  4. SYNTHROID [Suspect]
     Dosage: 75 MCG 1/DAY
     Dates: start: 20100901

REACTIONS (10)
  - MIDDLE INSOMNIA [None]
  - CHILLS [None]
  - BURNING SENSATION [None]
  - PRODUCT CONTAMINATION [None]
  - HOT FLUSH [None]
  - PYREXIA [None]
  - IRRITABILITY [None]
  - NIGHT SWEATS [None]
  - PRODUCT FORMULATION ISSUE [None]
  - HYPERHIDROSIS [None]
